FAERS Safety Report 7494314-9 (Version None)
Quarter: 2011Q2

REPORT INFORMATION
  Report Type: 
  Country: None (occurrence: None)
  Receive Date: 20110520
  Receipt Date: 20110517
  Transmission Date: 20111010
  Serious: Yes (Death, Hospitalization, Other)
  Sender: FDA-Public Use
  Company Number: PHHY2011FR41760

PATIENT
  Age: 12 Year
  Sex: Male

DRUGS (1)
  1. ASPIRIN [Suspect]
     Indication: VIRAL INFECTION
     Dosage: 250 MG

REACTIONS (27)
  - RENAL FAILURE [None]
  - HYPERKALAEMIA [None]
  - HYPONATRAEMIA [None]
  - VENTRICULAR DYSFUNCTION [None]
  - GASTROINTESTINAL DISORDER [None]
  - TACHYCARDIA [None]
  - REYE'S SYNDROME [None]
  - EMOTIONAL DISTRESS [None]
  - HEPATIC NECROSIS [None]
  - ALANINE AMINOTRANSFERASE INCREASED [None]
  - HYPERAMMONAEMIA [None]
  - PROTHROMBIN TIME RATIO DECREASED [None]
  - BLOOD CREATININE INCREASED [None]
  - HYPOGLYCAEMIA [None]
  - BLOOD PRESSURE INCREASED [None]
  - TACHYPNOEA [None]
  - BLOOD UREA INCREASED [None]
  - MYDRIASIS [None]
  - HEART RATE INCREASED [None]
  - ASPARTATE AMINOTRANSFERASE INCREASED [None]
  - METABOLIC ACIDOSIS [None]
  - BRADYCARDIA [None]
  - BODY TEMPERATURE DECREASED [None]
  - VOMITING [None]
  - LACTIC ACIDOSIS [None]
  - HAEMATEMESIS [None]
  - DRUG INTOLERANCE [None]
